FAERS Safety Report 5490618-X (Version None)
Quarter: 2007Q4

REPORT INFORMATION
  Report Type: 
  Country: None (occurrence: None)
  Receive Date: 20071019
  Receipt Date: 20071010
  Transmission Date: 20080405
  Serious: Yes (Hospitalization)
  Sender: FDA-Public Use
  Company Number: ES-PURDUE-GBR_2007_0003329

PATIENT
  Age: 83 Year
  Sex: Female

DRUGS (1)
  1. OXYNORM CAPSULES 10 MG [Suspect]
     Indication: CANCER PAIN
     Dosage: UNK, UNK
     Route: 048
     Dates: start: 20060807, end: 20060801

REACTIONS (1)
  - ACUTE PRERENAL FAILURE [None]
